FAERS Safety Report 5427848-9 (Version None)
Quarter: 2007Q3

REPORT INFORMATION
  Report Type: 
  Country: None (occurrence: None)
  Receive Date: 20070828
  Receipt Date: 20070521
  Transmission Date: 20080115
  Serious: Yes (Death)
  Sender: FDA-Public Use
  Company Number: US-KINGPHARMUSA00001-K200700618

PATIENT

DRUGS (1)
  1. PENICILLIN G PROCAINE SUSPENSION [Suspect]
     Indication: UPPER RESPIRATORY TRACT INFECTION
     Dates: start: 19730101

REACTIONS (1)
  - ANAPHYLACTIC REACTION [None]
